FAERS Safety Report 4704298-1 (Version None)
Quarter: 2005Q2

REPORT INFORMATION
  Report Type: 
  Country: None (occurrence: None)
  Receive Date: 20050630
  Receipt Date: 20050527
  Transmission Date: 20051028
  Serious: Yes (Other)
  Sender: FDA-Public Use
  Company Number: 2005UW08184

PATIENT
  Age: 81 Year
  Sex: Female
  Weight: 61 kg

DRUGS (7)
  1. NEXIUM [Suspect]
     Indication: DYSPEPSIA
     Route: 048
     Dates: start: 20041001, end: 20050401
  2. TUMS [Suspect]
     Indication: DYSPEPSIA
     Route: 048
     Dates: end: 20041001
  3. TUMS [Suspect]
     Route: 048
     Dates: start: 20050501
  4. TUMS [Suspect]
     Route: 048
     Dates: start: 20050501
  5. LESCOL [Suspect]
     Indication: BLOOD CHOLESTEROL
     Route: 048
     Dates: end: 20050401
  6. SYNTHROID [Concomitant]
  7. EYE MEDICATION [Concomitant]

REACTIONS (2)
  - FAECES DISCOLOURED [None]
  - HEPATIC ENZYME INCREASED [None]
